FAERS Safety Report 9540820 (Version 1)
Quarter: 2013Q3

REPORT INFORMATION
  Report Type: Spontaneous
  Country: CA (occurrence: CA)
  Receive Date: 20130920
  Receipt Date: 20130920
  Transmission Date: 20140515
  Serious: Yes (Other)
  Sender: FDA-Public Use
  Company Number: PHHY2013CA101506

PATIENT
  Age: 68 Year
  Sex: Male
  Weight: 73.3 kg

DRUGS (22)
  1. PHENYTOIN [Suspect]
     Indication: CONVULSION
     Dosage: 500 MG, LOADING DOSE
     Route: 042
  2. PHENYTOIN [Interacting]
     Dosage: 100 MG, Q8H
     Route: 042
  3. PHENYTOIN [Interacting]
     Dosage: 300 MG, DAILY
  4. PHENYTOIN [Interacting]
     Dosage: 350 MG, DAILY
  5. PHENYTOIN [Interacting]
     Dosage: 500 MG, DAILY
  6. PHENYTOIN [Interacting]
     Dosage: 400 MG, DAILY
  7. CARBAMAZEPINE [Interacting]
     Dosage: 200 MG, BID
  8. SIROLIMUS [Interacting]
     Indication: IMMUNOSUPPRESSION
     Dosage: 2 MG, DAILY
  9. SIROLIMUS [Interacting]
     Dosage: 3 MG, DAILY
  10. SIROLIMUS [Interacting]
     Dosage: 8 MG, DAILY
  11. ACETYLSALICYLIC ACID [Concomitant]
     Dosage: 81 MG, DAILY
  12. CLOPIDOGREL [Concomitant]
     Dosage: 75 MG, DAILY
  13. REPAGLINIDE [Concomitant]
     Dosage: 2 MG, TID
  14. INSULIN [Concomitant]
     Dosage: 4 TO 8 UNITS AT BEDTIME
  15. PANTOPRAZOLE [Concomitant]
     Dosage: 40 MG, DAILY
  16. METOPROLOL [Concomitant]
     Dosage: 25 MG, BID
  17. EZETIMIBE [Concomitant]
     Dosage: 10 MG, DAILY
  18. LEVOTHYROXINE [Concomitant]
     Dosage: 50 UG, DAILY
  19. CALCIUM CARBONATE [Concomitant]
     Dosage: 1250 MG, DAILY
  20. VITAMIN D [Concomitant]
     Dosage: 400 U, DAILY
  21. DORZOLAMIDE W/TIMOLOL [Concomitant]
  22. LEVETIRACETAM [Concomitant]
     Dosage: 500 MG, BID

REACTIONS (7)
  - Anticonvulsant drug level increased [Unknown]
  - Drug level decreased [Unknown]
  - Somnolence [Unknown]
  - Confusional state [Unknown]
  - Ataxia [Unknown]
  - Grand mal convulsion [Unknown]
  - Drug interaction [Unknown]
